FAERS Safety Report 8474810-8 (Version None)
Quarter: 2012Q2

REPORT INFORMATION
  Report Type: 
  Country: None (occurrence: None)
  Receive Date: 20120628
  Receipt Date: 20120621
  Transmission Date: 20120825
  Serious: Yes (Death, Hospitalization)
  Sender: FDA-Public Use
  Company Number: US-INCYTE CORPORATION-2012IN000835

PATIENT
  Sex: Male
  Weight: 58.05 kg

DRUGS (2)
  1. HYDROXYUREA [Concomitant]
  2. JAKAFI [Suspect]
     Indication: MYELOFIBROSIS
     Dosage: 10 MG, QD
     Route: 048
     Dates: start: 20120423, end: 20120508

REACTIONS (1)
  - CEREBROVASCULAR ACCIDENT [None]
